FAERS Safety Report 16730415 (Version 5)
Quarter: 2022Q4

REPORT INFORMATION
  Report Type: Spontaneous
  Country: US (occurrence: US)
  Receive Date: 20190822
  Receipt Date: 20221129
  Transmission Date: 20230113
  Serious: No
  Sender: FDA-Public Use
  Company Number: US-TEVA-2019-US-1094635

PATIENT
  Age: 67 Year
  Sex: Male

DRUGS (4)
  1. METOPROLOL SUCCINATE [Suspect]
     Active Substance: METOPROLOL SUCCINATE
     Indication: Blood pressure abnormal
     Route: 065
     Dates: start: 201904
  2. METOPROLOL SUCCINATE [Suspect]
     Active Substance: METOPROLOL SUCCINATE
     Dosage: TAKE ONE-HALF IN THE MORNING THEN ONE-HALF IN THE EVENING
     Route: 065
  3. METOPROLOL SUCCINATE [Suspect]
     Active Substance: METOPROLOL SUCCINATE
     Dosage: TAKE ONE-HALF IN THE MORNING THEN ONE-HALF IN THE EVENING
     Route: 065
     Dates: end: 2019
  4. CARTIA XT [Suspect]
     Active Substance: DILTIAZEM HYDROCHLORIDE
     Indication: Product used for unknown indication
     Route: 065

REACTIONS (10)
  - Rosacea [Unknown]
  - Acne [Recovering/Resolving]
  - Rash [Recovering/Resolving]
  - Urticaria [Recovering/Resolving]
  - Pigmentation disorder [Recovering/Resolving]
  - Scar [Recovering/Resolving]
  - Papule [Recovering/Resolving]
  - Dyspnoea [Recovered/Resolved]
  - Swelling [Not Recovered/Not Resolved]
  - Wrong technique in product usage process [Unknown]

NARRATIVE: CASE EVENT DATE: 20190101
